FAERS Safety Report 17226476 (Version 2)
Quarter: 2020Q2

REPORT INFORMATION
  Report Type: Spontaneous
  Country: US (occurrence: US)
  Receive Date: 20200102
  Receipt Date: 20200408
  Transmission Date: 20200713
  Serious: No
  Sender: FDA-Public Use
  Company Number: US-009507513-1912USA012322

PATIENT
  Sex: Female

DRUGS (2)
  1. GONADOTROPIN, CHORIONIC [Suspect]
     Active Substance: CHORIOGONADOTROPIN ALFA
     Indication: CONTROLLED OVARIAN STIMULATION
  2. THERAPY UNSPECIFIED [Suspect]
     Active Substance: UNSPECIFIED INGREDIENT

REACTIONS (1)
  - Therapy partial responder [Unknown]
